FAERS Safety Report 6305539-X (Version None)
Quarter: 2009Q3

REPORT INFORMATION
  Report Type: 
  Country: None (occurrence: None)
  Receive Date: 20090807
  Receipt Date: 20090729
  Transmission Date: 20100115
  Serious: Yes (Hospitalization)
  Sender: FDA-Public Use
  Company Number: 2009-201165-NL

PATIENT
  Age: 79 Year
  Sex: Male

DRUGS (9)
  1. NORSET (MIRTAZAPINE) (MIRTAZAPINE) [Suspect]
     Indication: DEPRESSION
     Dosage: 15 MG; QD
     Dates: start: 20090626, end: 20090701
  2. COAPROVEL (KARVEA HCT) [Suspect]
     Dosage: 1 DF
     Dates: start: 20070201
  3. SECTRAL [Concomitant]
  4. ZOCOR [Concomitant]
  5. RIVOTRIL [Concomitant]
  6. PREVISCAN [Concomitant]
  7. SKENAN [Concomitant]
  8. ACTISKENAN [Concomitant]
  9. PERMIXON [Concomitant]

REACTIONS (6)
  - CONFUSIONAL STATE [None]
  - DEPRESSED MOOD [None]
  - DEPRESSION [None]
  - FEELING ABNORMAL [None]
  - HYPOCHLORAEMIA [None]
  - HYPONATRAEMIA [None]
